FAERS Safety Report 10244422 (Version 1)
Quarter: 2014Q1

REPORT INFORMATION
  Report Type: Spontaneous
  Country: US (occurrence: None)
  Receive Date: 20140306
  Receipt Date: 20140306
  Transmission Date: 20141002
  Serious: Yes (Hospitalization)
  Sender: FDA-Public Use
  Company Number: 163-21880-13022743

PATIENT
  Age: 70 Year
  Sex: Male

DRUGS (12)
  1. REVLIMID (LENALIDOMIDE) (10 MILLIGRAM, CAPSULES) [Suspect]
     Indication: MYELODYSPLASTIC SYNDROME
     Route: 048
     Dates: start: 20120823
  2. BENADRYL ALLERGY/COLD (UNKNOWN) [Concomitant]
  3. CARVEDILOL (UNKNOWN) [Concomitant]
  4. COREG (CARVEDILOL) (UNKNOWN) [Concomitant]
  5. ENALAPRIL MALEATE (UNKNOWN) [Concomitant]
  6. PENOFIBRATE MICRONIZED (UNKNOWN) [Concomitant]
  7. GLUCOPHAGE (METFORMIN HYDROCHLORIDE) (UNKNOWN) [Concomitant]
  8. KLOR-CON M20 (POTASSIUM CHLORIDE) (UNKNOWN) [Concomitant]
  9. METOLAZONE (UNKNOWN) [Concomitant]
  10. CRESTOR (ROSUVASTATIN) (UNKNOWN) [Concomitant]
  11. FLOMAX (TAMSULOSIN HYDROCHLORIDE) (UNKNOWN) [Concomitant]
  12. FUROSEMIDE (UNKNOWN) [Concomitant]

REACTIONS (3)
  - Pleural effusion [None]
  - Pneumonia [None]
  - Kidney infection [None]
